FAERS Safety Report 23614421 (Version 1)
Quarter: 2024Q1

REPORT INFORMATION
  Report Type: Report from Study
  Country: US (occurrence: US)
  Receive Date: 20240311
  Receipt Date: 20240311
  Transmission Date: 20240410
  Serious: Yes (Hospitalization)
  Sender: FDA-Public Use
  Company Number: US-ACADIA PHARMACEUTICALS INC.-ACA-2024-PIM-000753

PATIENT
  Age: 67 Year
  Sex: Male

DRUGS (13)
  1. NUPLAZID [Suspect]
     Active Substance: PIMAVANSERIN TARTRATE
     Indication: Parkinson^s disease
     Dosage: 34 MILLIGRAM, QD
     Route: 048
     Dates: start: 202210
  2. APOKYN [Concomitant]
     Active Substance: APOMORPHINE HYDROCHLORIDE
  3. TRADJENTA [Concomitant]
     Active Substance: LINAGLIPTIN
  4. MIRAPEX [Concomitant]
     Active Substance: PRAMIPEXOLE DIHYDROCHLORIDE
  5. RIVASTIGMINE [Concomitant]
     Active Substance: RIVASTIGMINE
  6. TAMSULOSIN [Concomitant]
     Active Substance: TAMSULOSIN
  7. JANUMET [Concomitant]
     Active Substance: METFORMIN HYDROCHLORIDE\SITAGLIPTIN PHOSPHATE
  8. LANTUS [Concomitant]
     Active Substance: INSULIN GLARGINE
  9. CLONAZEPAM [Concomitant]
     Active Substance: CLONAZEPAM
  10. CYCLOBENZAPRINE [Concomitant]
     Active Substance: CYCLOBENZAPRINE
  11. PRAMIPEXOLE [Concomitant]
     Active Substance: PRAMIPEXOLE\PRAMIPEXOLE DIHYDROCHLORIDE
  12. LEVETIRACETAM [Concomitant]
     Active Substance: LEVETIRACETAM
  13. STALEVO [Concomitant]
     Active Substance: CARBIDOPA\ENTACAPONE\LEVODOPA

REACTIONS (1)
  - Fall [Unknown]

NARRATIVE: CASE EVENT DATE: 20231201
